FAERS Safety Report 26169471 (Version 1)
Quarter: 2025Q4

REPORT INFORMATION
  Report Type: Spontaneous
  Country: GB (occurrence: GB)
  Receive Date: 20251217
  Receipt Date: 20251217
  Transmission Date: 20260119
  Serious: Yes (Disabling, Other)
  Sender: DR REDDYS
  Company Number: GB-UKI-GBR/2025/12/019010

PATIENT
  Age: 45 Year
  Sex: Male

DRUGS (1)
  1. ATORVASTATIN [Suspect]
     Active Substance: ATORVASTATIN
     Indication: Hyperlipidaemia

REACTIONS (2)
  - Immune-mediated myositis [Recovered/Resolved]
  - Fall [Recovered/Resolved]
